FAERS Safety Report 10440632 (Version 1)
Quarter: 2014Q3

REPORT INFORMATION
  Report Type: Spontaneous
  Country: US (occurrence: None)
  Receive Date: 20140908
  Receipt Date: 20140908
  Transmission Date: 20150326
  Serious: Yes (Other)
  Sender: FDA-Public Use
  Company Number: None

PATIENT
  Age: 44 Year
  Sex: Male
  Weight: 95.26 kg

DRUGS (1)
  1. TRAMADOL [Suspect]
     Active Substance: TRAMADOL
     Indication: PROCEDURAL PAIN
     Dosage: 15 PILLS, AS NEEDED, TAKEN BY MOUTH
     Route: 048
     Dates: start: 20140709, end: 20140716

REACTIONS (4)
  - Nightmare [None]
  - Middle insomnia [None]
  - Paraesthesia [None]
  - Tremor [None]

NARRATIVE: CASE EVENT DATE: 20140905
